FAERS Safety Report 6077829-X (Version None)
Quarter: 2009Q1

REPORT INFORMATION
  Report Type: 
  Country: None (occurrence: None)
  Receive Date: 20090211
  Receipt Date: 20090128
  Transmission Date: 20090719
  Serious: Yes (Other)
  Sender: FDA-Public Use
  Company Number: 2009AP000391

PATIENT
  Age: 66 Year
  Sex: Female

DRUGS (2)
  1. AMLODIPINE BESYLATE [Suspect]
     Indication: HYPERTENSION
     Dosage: 10 MG; TAB; PO; QD
     Route: 048
     Dates: start: 20080101, end: 20081206
  2. FOSICOMBI (ELIDIUR) [Suspect]
     Indication: HYPERTENSION
     Dosage: 1 TAB; TAB; PO; QD
     Route: 048
     Dates: start: 20080101, end: 20081206

REACTIONS (4)
  - HYPOTENSION [None]
  - MALAISE [None]
  - SYNCOPE [None]
  - VERTIGO [None]
